FAERS Safety Report 16083735 (Version 1)
Quarter: 2019Q2

REPORT INFORMATION
  Report Type: Spontaneous
  Country: US (occurrence: US)
  Receive Date: 20190315
  Receipt Date: 20190315
  Transmission Date: 20190711
  Serious: Yes (Hospitalization)
  Sender: FDA-Public Use
  Company Number: None

PATIENT
  Age: 84 Year
  Sex: Male

DRUGS (17)
  1. ADVIL [Concomitant]
     Active Substance: IBUPROFEN
  2. AMIODARONE [Concomitant]
     Active Substance: AMIODARONE
  3. PERCOCET [Concomitant]
     Active Substance: ACETAMINOPHEN\OXYCODONE HYDROCHLORIDE
  4. MVI [Concomitant]
     Active Substance: VITAMINS
  5. TAFINLAR [Suspect]
     Active Substance: DABRAFENIB MESYLATE
     Indication: CARCINOID TUMOUR
     Dosage: ?          OTHER FREQUENCY:2 CAP Q 12 HOURS;?
     Route: 048
     Dates: start: 20180822
  6. PROPYLTHIOURICIL [Concomitant]
  7. TIMOLOL. [Concomitant]
     Active Substance: TIMOLOL
  8. ZETIA [Concomitant]
     Active Substance: EZETIMIBE
  9. LUMIGAN [Concomitant]
     Active Substance: BIMATOPROST
  10. ATORVASTATIN [Concomitant]
     Active Substance: ATORVASTATIN
  11. ELIQUIS [Concomitant]
     Active Substance: APIXABAN
  12. OMEGA 3 CAPSULES [Concomitant]
  13. AZOPT [Concomitant]
     Active Substance: BRINZOLAMIDE
  14. RANITIDINE. [Concomitant]
     Active Substance: RANITIDINE
  15. MEKINIST [Suspect]
     Active Substance: TRAMETINIB DIMETHYL SULFOXIDE
     Indication: CARCINOID TUMOUR
     Dosage: ?          OTHER FREQUENCY:4 TABLETS DAILY;?
     Route: 048
     Dates: start: 20180822
  16. DILTIAZEM. [Concomitant]
     Active Substance: DILTIAZEM
  17. NG SUBLINGUAL [Concomitant]

REACTIONS (5)
  - Transient ischaemic attack [None]
  - Diarrhoea [None]
  - Nausea [None]
  - Vomiting [None]
  - Atelectasis [None]
